FAERS Safety Report 4284986-4 (Version None)
Quarter: 2004Q1

REPORT INFORMATION
  Report Type: 
  Country: None (occurrence: None)
  Receive Date: 20040202
  Receipt Date: 20040121
  Transmission Date: 20041129
  Serious: Yes (Other)
  Sender: FDA-Public Use
  Company Number: NSADSS2003010092

PATIENT
  Age: 49 Year
  Sex: Female

DRUGS (2)
  1. REMICADE [Suspect]
     Indication: CROHN'S DISEASE
     Dosage: , 1 IN 1 AS NECESSARY, INTRAVENOUS DRIP
     Route: 041
  2. STEROID (CORTICOSTEROID NOS) [Concomitant]

REACTIONS (1)
  - HYPOGAMMAGLOBULINAEMIA [None]
